FAERS Safety Report 8226146-8 (Version None)
Quarter: 2012Q1

REPORT INFORMATION
  Report Type: 
  Country: None (occurrence: None)
  Receive Date: 20120319
  Receipt Date: 20120302
  Transmission Date: 20120608
  Serious: Yes (Hospitalization)
  Sender: FDA-Public Use
  Company Number: ENTC2012-0093

PATIENT
  Age: 60 Year
  Sex: Male

DRUGS (5)
  1. CLONAZEPAM [Concomitant]
  2. STALEVO 100 [Suspect]
     Indication: PARKINSON'S DISEASE
     Dosage: 1 DF (750/187.5/1000 MG) DAILY ORAL
     Route: 048
     Dates: start: 20100101
  3. DOXAZOSIN MESYLATE [Concomitant]
  4. AZILECT [Suspect]
     Indication: PARKINSON'S DISEASE
     Dosage: 1 MG QD, ORAL
     Route: 048
     Dates: start: 20111121, end: 20120122
  5. ALDACTONE [Concomitant]

REACTIONS (10)
  - GENERAL PHYSICAL HEALTH DETERIORATION [None]
  - DEHYDRATION [None]
  - DYSKINESIA [None]
  - ARTHRALGIA [None]
  - VERTIGO [None]
  - SUBILEUS [None]
  - C-REACTIVE PROTEIN INCREASED [None]
  - CONJUNCTIVITIS [None]
  - OBSESSIVE-COMPULSIVE DISORDER [None]
  - PYREXIA [None]
